FAERS Safety Report 9112237 (Version 1)
Quarter: 2013Q1

REPORT INFORMATION
  Report Type: Spontaneous
  Country: US (occurrence: US)
  Receive Date: 20130219
  Receipt Date: 20130219
  Transmission Date: 20140127
  Serious: No
  Sender: FDA-Public Use
  Company Number: US-BRISTOL-MYERS SQUIBB COMPANY-17017500

PATIENT
  Age: 75 Year
  Sex: Female
  Weight: 118.36 kg

DRUGS (1)
  1. ORENCIA [Suspect]
     Indication: RHEUMATOID ARTHRITIS
     Dosage: NO OF INF:4,LOADING DOSES:1,15,21AUG12.LAST INF:27SEP12
     Route: 042
     Dates: start: 20120801

REACTIONS (6)
  - Pain [Unknown]
  - Fatigue [Unknown]
  - Anxiety [Unknown]
  - Weight decreased [Unknown]
  - Nervousness [Unknown]
  - Drug ineffective [Unknown]
